FAERS Safety Report 18242075 (Version 1)
Quarter: 2020Q3

REPORT INFORMATION
  Report Type: Spontaneous
  Country: US (occurrence: US)
  Receive Date: 20200908
  Receipt Date: 20200908
  Transmission Date: 20201103
  Serious: Yes (Hospitalization)
  Sender: FDA-Public Use
  Company Number: None

PATIENT
  Age: 17 Year
  Sex: Male

DRUGS (8)
  1. FEROSUL [Concomitant]
     Active Substance: FERROUS SULFATE
  2. HUMIRA [Suspect]
     Active Substance: ADALIMUMAB
     Indication: RECTAL HAEMORRHAGE
     Dosage: 2 TOT 2=DAY 1. 1=DA SUBCUTANEOUS
     Route: 058
     Dates: start: 20200821
  3. HUMIRA [Suspect]
     Active Substance: ADALIMUMAB
     Indication: CROHN^S DISEASE
     Dosage: 2 TOT 2=DAY 1. 1=DA SUBCUTANEOUS
     Route: 058
     Dates: start: 20200821
  4. VITAMIN C [Concomitant]
     Active Substance: ASCORBIC ACID
  5. OMEPRAZOLE. [Concomitant]
     Active Substance: OMEPRAZOLE
  6. PREDNISONE. [Concomitant]
     Active Substance: PREDNISONE
  7. FOLIC ACID. [Concomitant]
     Active Substance: FOLIC ACID
  8. BUDESONIDE. [Concomitant]
     Active Substance: BUDESONIDE

REACTIONS (3)
  - Diarrhoea [None]
  - Haematochezia [None]
  - Abdominal pain upper [None]

NARRATIVE: CASE EVENT DATE: 20200814
